FAERS Safety Report 4952015-2 (Version None)
Quarter: 2006Q1

REPORT INFORMATION
  Report Type: 
  Country: None (occurrence: None)
  Receive Date: 20060322
  Receipt Date: 20060322
  Transmission Date: 20060701
  Serious: Yes (Death)
  Sender: FDA-Public Use
  Company Number: None

PATIENT
  Age: 60 Year
  Sex: Male
  Weight: 75 kg

DRUGS (2)
  1. ANGIOMAX [Suspect]
     Indication: ANTIPLATELET THERAPY
     Dosage: 250 MG GIVEN
     Dates: start: 20060306
  2. ANGIOMAX [Suspect]

REACTIONS (2)
  - CARDIO-RESPIRATORY ARREST [None]
  - POST PROCEDURAL COMPLICATION [None]
